FAERS Safety Report 6282927-1 (Version None)
Quarter: 2009Q3

REPORT INFORMATION
  Report Type: 
  Country: None (occurrence: None)
  Receive Date: 20090722
  Receipt Date: 20090722
  Transmission Date: 20100115
  Serious: No
  Sender: FDA-Public Use
  Company Number: None

PATIENT
  Sex: Male
  Weight: 104.3273 kg

DRUGS (1)
  1. MIRAPEX [Suspect]
     Dosage: 1.5 - 2.5 MG VARIED PO FIVE TO SIX YEARS
     Route: 048

REACTIONS (1)
  - PATHOLOGICAL GAMBLING [None]
